FAERS Safety Report 13662647 (Version 1)
Quarter: 2017Q2

REPORT INFORMATION
  Report Type: Spontaneous
  Country: US (occurrence: US)
  Receive Date: 20170616
  Receipt Date: 20170616
  Transmission Date: 20170830
  Serious: Yes (Hospitalization)
  Sender: FDA-Public Use
  Company Number: None

PATIENT
  Age: 64 Year
  Sex: Male
  Weight: 85.4 kg

DRUGS (2)
  1. FENTANYL. [Suspect]
     Active Substance: FENTANYL
     Indication: PAIN
     Route: 030
  2. HYDROMORPHONE [Suspect]
     Active Substance: HYDROMORPHONE
     Indication: PAIN
     Dosage: 0.4 MG OTHER IV?
     Route: 042
     Dates: start: 20160708, end: 20160709

REACTIONS (5)
  - Gastric haemorrhage [None]
  - Toxicity to various agents [None]
  - Constipation [None]
  - Clostridium difficile colitis [None]
  - Ileus [None]

NARRATIVE: CASE EVENT DATE: 20160711
